FAERS Safety Report 17181091 (Version 1)
Quarter: 2019Q4

REPORT INFORMATION
  Report Type: Spontaneous
  Country: FR (occurrence: FR)
  Receive Date: 20191220
  Receipt Date: 20191220
  Transmission Date: 20200122
  Serious: Yes (Hospitalization)
  Sender: FDA-Public Use
  Company Number: FR-SUN PHARMACEUTICAL INDUSTRIES LTD-2019RR-231451

PATIENT
  Age: 51 Year
  Sex: Female

DRUGS (10)
  1. PARKINANE L P 5 MG, GELULE A LIBERATION PROLONGEE [Concomitant]
     Active Substance: TRIHEXYPHENIDYL HYDROCHLORIDE
     Indication: PARKINSONISM
     Dosage: 1-0-1
     Route: 048
  2. LEVETIRACETAM. [Concomitant]
     Active Substance: LEVETIRACETAM
     Indication: EPILEPSY
     Dosage: 2-0-2
     Route: 048
  3. CLOPIXOL 10 MG, COMPRIME PELLICULE [Concomitant]
     Indication: PSYCHOTIC DISORDER
     Dosage: 0-0-2
     Route: 048
  4. CLOPIXOL 25 MG, COMPRIME PELLICULE [Concomitant]
     Indication: PSYCHOTIC DISORDER
     Dosage: 0-0-3
     Route: 048
  5. PARACETAMOL [Suspect]
     Active Substance: ACETAMINOPHEN
     Indication: PRODUCT USED FOR UNKNOWN INDICATION
     Dosage: 10 GRAM, IN TOTAL
     Route: 048
     Dates: start: 20190509, end: 20190509
  6. LOXAPAC 50 MG, COMPRIME PELLICULE [Concomitant]
     Active Substance: LOXAPINE SUCCINATE
     Indication: PSYCHOTIC DISORDER
     Dosage: 0-0-0.5
     Route: 048
  7. NICOPATCH [Concomitant]
     Active Substance: NICOTINE
     Indication: EX-TOBACCO USER
     Dosage: ()
     Route: 048
  8. SULFARLEM [Concomitant]
     Active Substance: ANETHOLTRITHION
     Indication: DRY MOUTH
     Dosage: 2-0-2
     Route: 048
  9. LOXAPINE (SUCCINATE DE) [Concomitant]
     Active Substance: LOXAPINE SUCCINATE
     Indication: PSYCHOTIC DISORDER
     Dosage: 375 MILLIGRAM, DAILY, 0-0-15 (GOUTTES)
     Route: 048
  10. PANTOPRAZOLE [Concomitant]
     Active Substance: PANTOPRAZOLE
     Indication: GASTROINTESTINAL DISORDER PROPHYLAXIS
     Dosage: 0-0-1
     Route: 048

REACTIONS (4)
  - Abdominal pain [Recovered/Resolved]
  - Headache [Recovered/Resolved]
  - Poisoning deliberate [Recovered/Resolved]
  - Intentional overdose [Recovered/Resolved]

NARRATIVE: CASE EVENT DATE: 20190509
